FAERS Safety Report 16485347 (Version 1)
Quarter: 2019Q2

REPORT INFORMATION
  Report Type: Spontaneous
  Country: US (occurrence: US)
  Receive Date: 20190627
  Receipt Date: 20190627
  Transmission Date: 20190711
  Serious: No
  Sender: FDA-Public Use
  Company Number: US-VIRTUS PHARMACEUTICALS, LLC-2019VTS00012

PATIENT
  Age: 60 Year
  Sex: Female
  Weight: 46.71 kg

DRUGS (10)
  1. UNSPECIFIED BROCCOLI-BASED SUPPLEMENT [Concomitant]
  2. PROGESTERONE. [Suspect]
     Active Substance: PROGESTERONE
     Indication: HORMONE REPLACEMENT THERAPY
     Dosage: 200 MG, 1X/DAY AT BEDTIME
     Route: 048
     Dates: start: 201902
  3. TESTOSTERONE. [Concomitant]
     Active Substance: TESTOSTERONE
  4. ADK HORMONE THERAPY [Concomitant]
  5. LIPITOR [Concomitant]
     Active Substance: ATORVASTATIN CALCIUM
  6. ESTRADIOL. [Concomitant]
     Active Substance: ESTRADIOL
  7. FLUOXETINE [Concomitant]
     Active Substance: FLUOXETINE HYDROCHLORIDE
  8. DAILY MULTIVITAMIN [Concomitant]
     Active Substance: VITAMINS
  9. PROGESTERONE. [Suspect]
     Active Substance: PROGESTERONE
     Indication: POSTMENOPAUSE
  10. VITAMIN C [Concomitant]
     Active Substance: ASCORBIC ACID
     Dosage: OCCASIONALLY

REACTIONS (4)
  - Gastrointestinal pain [Recovering/Resolving]
  - Abdominal distension [Recovering/Resolving]
  - Hypophagia [Not Recovered/Not Resolved]
  - Nausea [Recovering/Resolving]

NARRATIVE: CASE EVENT DATE: 2019
